FAERS Safety Report 20141621 (Version 1)
Quarter: 2021Q4

REPORT INFORMATION
  Report Type: Spontaneous
  Country: NL (occurrence: NL)
  Receive Date: 20211202
  Receipt Date: 20211202
  Transmission Date: 20220303
  Serious: Yes (Other)
  Sender: FDA-Public Use
  Company Number: NL-PFIZER INC-202101352800

PATIENT
  Age: 83 Year
  Sex: Female

DRUGS (1)
  1. PREGABALIN [Suspect]
     Active Substance: PREGABALIN
     Indication: Product used for unknown indication
     Dosage: 10500 MG (DOSE (MGKG-1)/210.0)

REACTIONS (5)
  - Confusional state [Unknown]
  - Accidental overdose [Unknown]
  - Headache [Unknown]
  - Loss of consciousness [Unknown]
  - Somnolence [Unknown]
